FAERS Safety Report 24435407 (Version 2)
Quarter: 2024Q4

REPORT INFORMATION
  Report Type: Spontaneous
  Country: IT (occurrence: IT)
  Receive Date: 20241015
  Receipt Date: 20241127
  Transmission Date: 20250114
  Serious: Yes (Other)
  Sender: BEIGENE
  Company Number: None

PATIENT

DRUGS (1)
  1. BRUKINSA [Suspect]
     Active Substance: ZANUBRUTINIB
     Indication: Waldenstrom^s macroglobulinaemia
     Dosage: 8600 MG / 28 GG
     Route: 048
     Dates: start: 20220624

REACTIONS (1)
  - Skin swelling [Recovering/Resolving]

NARRATIVE: CASE EVENT DATE: 20240919
